FAERS Safety Report 9821843 (Version 2)
Quarter: 2014Q1

REPORT INFORMATION
  Report Type: Spontaneous
  Country: US (occurrence: US)
  Receive Date: 20140116
  Receipt Date: 20140313
  Transmission Date: 20141002
  Serious: No
  Sender: FDA-Public Use
  Company Number: US-009507513-1401USA004259

PATIENT
  Age: 83 Year
  Sex: Female
  Weight: 81.63 kg

DRUGS (8)
  1. OXYTROL FOR WOMEN [Suspect]
     Indication: HYPERTONIC BLADDER
     Dosage: 1 DF, Q4D
     Route: 062
     Dates: start: 20131114, end: 20131220
  2. LEVOXYL [Concomitant]
     Indication: THYROID DISORDER
     Dosage: UNK, UNKNOWN
  3. ALEVE [Concomitant]
     Indication: ARTHRITIS
     Dosage: UNK, UNKNOWN
  4. NORVASC [Concomitant]
     Indication: HYPERTENSION
     Dosage: UNK, UNKNOWN
  5. SIMVASTATIN [Concomitant]
     Indication: BLOOD CHOLESTEROL
     Dosage: UNK, UNKNOWN
  6. OMEGA-3 MARINE TRIGLYCERIDES [Concomitant]
     Indication: PRODUCT USED FOR UNKNOWN INDICATION
     Dosage: UNK, UNKNOWN
  7. CHOLECALCIFEROL [Concomitant]
     Indication: PRODUCT USED FOR UNKNOWN INDICATION
     Dosage: UNK, UNKNOWN
  8. UBIDECARENONE [Concomitant]
     Indication: PRODUCT USED FOR UNKNOWN INDICATION
     Dosage: UNK, UNKNOWN

REACTIONS (2)
  - Application site erythema [Recovered/Resolved]
  - Application site pruritus [Recovered/Resolved]
